FAERS Safety Report 24764195 (Version 1)
Quarter: 2024Q4

REPORT INFORMATION
  Report Type: Spontaneous
  Country: ES (occurrence: ES)
  Receive Date: 20241223
  Receipt Date: 20241223
  Transmission Date: 20250115
  Serious: Yes (Death, Other)
  Sender: AMGEN
  Company Number: ES-AMGEN-ESPSP2024247935

PATIENT

DRUGS (2)
  1. ROMIPLOSTIM [Suspect]
     Active Substance: ROMIPLOSTIM
     Indication: Immune thrombocytopenia
     Dosage: UNK
     Route: 065
  2. ELTROMBOPAG [Suspect]
     Active Substance: ELTROMBOPAG
     Indication: Immune thrombocytopenia
     Dosage: UNK
     Route: 065

REACTIONS (13)
  - Bacterial sepsis [Fatal]
  - Disease progression [Fatal]
  - Neoplasm [Fatal]
  - Aspergillus infection [Fatal]
  - Anaemia [Fatal]
  - Haemorrhage [Fatal]
  - Cerebrovascular accident [Unknown]
  - Pancreatitis acute [Unknown]
  - Acute myocardial infarction [Unknown]
  - Pulmonary embolism [Unknown]
  - Deep vein thrombosis [Unknown]
  - Myelofibrosis [Unknown]
  - Bacterial infection [Unknown]
